FAERS Safety Report 13644360 (Version 1)
Quarter: 2017Q2

REPORT INFORMATION
  Report Type: Spontaneous
  Country: US (occurrence: US)
  Receive Date: 20170612
  Receipt Date: 20170612
  Transmission Date: 20170830
  Serious: No
  Sender: FDA-Public Use
  Company Number: US-ROCHE-1341641

PATIENT
  Sex: Female

DRUGS (7)
  1. IBUPROFEN. [Concomitant]
     Active Substance: IBUPROFEN
  2. ATIVAN [Concomitant]
     Active Substance: LORAZEPAM
  3. PERCOCET [Concomitant]
     Active Substance: ACETAMINOPHEN\OXYCODONE HYDROCHLORIDE
  4. EXEMESTANE. [Concomitant]
     Active Substance: EXEMESTANE
  5. XELODA [Suspect]
     Active Substance: CAPECITABINE
     Dosage: 14 DAYS ON AND 7 DAYS OFF.
     Route: 048
     Dates: start: 20131030
  6. XELODA [Suspect]
     Active Substance: CAPECITABINE
     Indication: BREAST CANCER
     Dosage: 14 DAYS ON AND 7 DAYS OFF.
     Route: 048
     Dates: start: 20130516, end: 20131023
  7. AFINITOR [Concomitant]
     Active Substance: EVEROLIMUS
     Indication: BREAST CANCER
     Route: 048
     Dates: start: 20140101

REACTIONS (1)
  - Palmar-plantar erythrodysaesthesia syndrome [Unknown]
